FAERS Safety Report 5903963-8 (Version None)
Quarter: 2008Q3

REPORT INFORMATION
  Report Type: 
  Country: None (occurrence: None)
  Receive Date: 20080919
  Receipt Date: 20080702
  Transmission Date: 20090109
  Serious: No
  Sender: FDA-Public Use
  Company Number: US-WYE-H04930408

PATIENT
  Age: 68 Year
  Sex: Female
  Weight: 111.23 kg

DRUGS (10)
  1. PRISTIQ [Suspect]
     Indication: DEPRESSION
     Dosage: 50 MG 1X PER 1 DAY, ORAL
     Route: 048
     Dates: start: 20080627
  2. SEROQUEL [Concomitant]
  3. CLONZAZEPAM (CLONAZEPAM) [Concomitant]
  4. CARBAMAZEPINE [Concomitant]
  5. CLONIDINE [Concomitant]
  6. KLOR-CON [Concomitant]
  7. FUROSEMIDE [Concomitant]
  8. NADOLOL [Concomitant]
  9. DIOVAN [Concomitant]
  10. VYTORIN [Concomitant]

REACTIONS (4)
  - AMNESIA [None]
  - EMOTIONAL DISTRESS [None]
  - SLEEP DISORDER [None]
  - STRESS [None]
